FAERS Safety Report 13098871 (Version 1)
Quarter: 2017Q1

REPORT INFORMATION
  Report Type: Spontaneous
  Country: US (occurrence: US)
  Receive Date: 20170109
  Receipt Date: 20170109
  Transmission Date: 20170428
  Serious: No
  Sender: FDA-Public Use
  Company Number: US-DRREDDYS-USA/USA/16/0076605

PATIENT
  Age: 48 Year
  Sex: Male

DRUGS (1)
  1. HABITROL [Suspect]
     Active Substance: NICOTINE
     Indication: SMOKING CESSATION THERAPY
     Route: 062

REACTIONS (8)
  - Nicotine dependence [Not Recovered/Not Resolved]
  - Wrong technique in product usage process [Unknown]
  - Weight increased [Not Recovered/Not Resolved]
  - Cough [Not Recovered/Not Resolved]
  - Product adhesion issue [Unknown]
  - Extra dose administered [Unknown]
  - Chest pain [Not Recovered/Not Resolved]
  - Expired product administered [Unknown]
